FAERS Safety Report 7498589-1 (Version None)
Quarter: 2011Q2

REPORT INFORMATION
  Report Type: 
  Country: None (occurrence: None)
  Receive Date: 20110524
  Receipt Date: 20110421
  Transmission Date: 20111010
  Serious: Yes (Hospitalization, Other)
  Sender: FDA-Public Use
  Company Number: US-BAYER-201034033NA

PATIENT
  Sex: Female
  Weight: 43.084 kg

DRUGS (4)
  1. ZOLOFT [Concomitant]
     Route: 048
  2. YASMIN [Suspect]
     Indication: CONTRACEPTION
     Dosage: UNK UNK, UNK
     Route: 048
     Dates: start: 20020201, end: 20080101
  3. ADDERALL 10 [Concomitant]
  4. PRISTIQ [Concomitant]
     Route: 048

REACTIONS (8)
  - VOMITING [None]
  - CHOLECYSTITIS ACUTE [None]
  - NAUSEA [None]
  - GALLBLADDER INJURY [None]
  - CHOLECYSTITIS CHRONIC [None]
  - CHOLELITHIASIS [None]
  - ABDOMINAL PAIN UPPER [None]
  - DIARRHOEA [None]
